FAERS Safety Report 10146351 (Version 1)
Quarter: 2014Q2

REPORT INFORMATION
  Report Type: Spontaneous
  Country: US (occurrence: None)
  Receive Date: 20140430
  Receipt Date: 20140430
  Transmission Date: 20141212
  Serious: Yes (Hospitalization)
  Sender: FDA-Public Use
  Company Number: None

PATIENT
  Age: 76 Year
  Sex: Female

DRUGS (12)
  1. VANCOMYCIN [Suspect]
     Indication: INFECTION
     Route: 042
     Dates: start: 20130904, end: 20130924
  2. PAROXETINE [Concomitant]
  3. SIMVASTATIN [Concomitant]
  4. DOCUSATE [Concomitant]
  5. AMLODIPINE [Concomitant]
  6. ASPIRIN [Concomitant]
  7. CALCIUM [Concomitant]
  8. HYDROCHLOROTHIAZIDE [Concomitant]
  9. OMEPRAZOLE [Concomitant]
  10. LACTOBACILLUS GRANULES [Concomitant]
  11. METOPROLOL [Concomitant]
  12. MULTIVITAMIN [Concomitant]

REACTIONS (3)
  - Neutropenia [None]
  - Renal failure acute [None]
  - Liver injury [None]
